FAERS Safety Report 6578363-0 (Version None)
Quarter: 2010Q1

REPORT INFORMATION
  Report Type: 
  Country: None (occurrence: None)
  Receive Date: 20100211
  Receipt Date: 20091104
  Transmission Date: 20100710
  Serious: Yes (Hospitalization)
  Sender: FDA-Public Use
  Company Number: JP-SANOFI-AVENTIS-2009SA002479

PATIENT
  Age: 69 Year
  Sex: Male
  Weight: 60 kg

DRUGS (7)
  1. PLAVIX [Suspect]
     Route: 048
     Dates: start: 20081022, end: 20081022
  2. PLAVIX [Suspect]
     Route: 048
     Dates: start: 20081023, end: 20081202
  3. ASPIRIN [Concomitant]
     Route: 048
     Dates: start: 20081022
  4. HEPARIN [Concomitant]
     Dosage: DOSE:20000 UNIT(S)
     Route: 042
     Dates: start: 20081022, end: 20081024
  5. RENIVACE [Concomitant]
     Route: 048
     Dates: start: 20081022
  6. ROSUVASTATIN [Concomitant]
     Route: 048
     Dates: start: 20081022
  7. AMARYL [Concomitant]
     Route: 048
     Dates: start: 20081022

REACTIONS (1)
  - NEPHROPATHY [None]
